FAERS Safety Report 10431872 (Version 9)
Quarter: 2015Q1

REPORT INFORMATION
  Report Type: Report from Study
  Country: KR (occurrence: KR)
  Receive Date: 20140905
  Receipt Date: 20150331
  Transmission Date: 20150720
  Serious: Yes (Hospitalization)
  Sender: FDA-Public Use
  Company Number: KR-ROCHE-1454300

PATIENT
  Age: 67 Year
  Sex: Female
  Weight: 53.6 kg

DRUGS (46)
  1. EMEND [Concomitant]
     Active Substance: APREPITANT
     Indication: NAUSEA
     Route: 048
     Dates: start: 20140807
  2. DEXAMETHASONE. [Concomitant]
     Active Substance: DEXAMETHASONE
     Indication: NAUSEA
     Route: 042
     Dates: start: 20140807
  3. MEGESTROL [Concomitant]
     Active Substance: MEGESTROL
     Indication: DECREASED APPETITE
     Route: 048
     Dates: start: 20140820, end: 20140823
  4. PROAMINE [Concomitant]
     Indication: DECREASED APPETITE
     Route: 042
     Dates: start: 20140823, end: 20140823
  5. MORPHINE [Concomitant]
     Active Substance: MORPHINE
     Indication: ABDOMINAL PAIN
     Route: 042
     Dates: start: 20140822, end: 20140826
  6. POTASSIUM CHLORIDE. [Concomitant]
     Active Substance: POTASSIUM CHLORIDE
     Indication: HYPOKALAEMIA
     Route: 042
     Dates: start: 20140824, end: 20140825
  7. POTASSIUM CHLORIDE. [Concomitant]
     Active Substance: POTASSIUM CHLORIDE
     Route: 042
     Dates: start: 20140929, end: 20141003
  8. ARESTAL [Concomitant]
     Active Substance: LOPERAMIDE OXIDE
     Indication: DIARRHOEA
     Route: 048
     Dates: start: 20140926, end: 20141006
  9. K-CONTIN [Concomitant]
     Indication: HYPOKALAEMIA
     Route: 048
     Dates: start: 20140927, end: 20140929
  10. PENIRAMIN [Concomitant]
     Indication: URTICARIA
     Route: 042
     Dates: start: 20140928, end: 20140928
  11. EMEND [Concomitant]
     Active Substance: APREPITANT
     Route: 048
     Dates: start: 20140913, end: 20140914
  12. DEXAMETHASONE. [Concomitant]
     Active Substance: DEXAMETHASONE
     Indication: VOMITING
     Route: 048
     Dates: start: 20140808, end: 20140810
  13. PHOSTEN [Concomitant]
     Indication: HYPOPHOSPHATAEMIA
     Route: 042
     Dates: start: 20140824, end: 20140826
  14. PHOSTEN [Concomitant]
     Indication: HYPOKALAEMIA
     Dosage: SELECT IF ONGOING=NO
     Route: 042
     Dates: start: 20140929, end: 20140929
  15. PHAZYME-95 [Concomitant]
     Indication: DYSPEPSIA
     Route: 048
     Dates: start: 20140901, end: 20140903
  16. ACTIFED (SOUTH KOREA) [Concomitant]
     Indication: COUGH
     Route: 048
     Dates: start: 20140929, end: 20141007
  17. MAGNESIUM SULFATE. [Concomitant]
     Active Substance: MAGNESIUM SULFATE
     Route: 042
     Dates: start: 20140928, end: 20140928
  18. NASEA [Concomitant]
     Active Substance: RAMOSETRON HYDROCHLORIDE
     Indication: NAUSEA
     Route: 042
     Dates: start: 20140807
  19. VASELINE PURE [Concomitant]
     Active Substance: PETROLATUM
     Indication: URTICARIA
     Route: 061
     Dates: start: 20140927, end: 20141007
  20. DEXAMETHASONE. [Concomitant]
     Active Substance: DEXAMETHASONE
     Route: 048
     Dates: start: 20140913, end: 20140915
  21. SMECTA [Concomitant]
     Active Substance: MONTMORILLONITE
     Indication: DIARRHOEA
     Route: 048
     Dates: start: 20140830, end: 20141007
  22. LEUKOKINE [Concomitant]
     Indication: NEUTROPENIA
     Route: 042
     Dates: start: 20140929, end: 20140929
  23. PERTUZUMAB [Suspect]
     Active Substance: PERTUZUMAB
     Indication: HER-2 POSITIVE GASTRIC CANCER
     Dosage: MOST RECENT DOSE: 07/AUG/2014
     Route: 042
     Dates: start: 20140807
  24. TRASTUZUMAB [Suspect]
     Active Substance: TRASTUZUMAB
     Indication: HER-2 POSITIVE GASTRIC CANCER
     Dosage: LOADING DOSE?MOST RECENT DOSE ON 07/AUG/2014
     Route: 042
     Dates: start: 20140807, end: 20140807
  25. SODIUM BICARBONATE. [Concomitant]
     Active Substance: SODIUM BICARBONATE
     Route: 050
     Dates: start: 20140923
  26. MEGACE F [Concomitant]
     Indication: DECREASED APPETITE
     Route: 048
     Dates: start: 20140901, end: 20140922
  27. NEXIUM [Concomitant]
     Active Substance: ESOMEPRAZOLE MAGNESIUM
     Indication: DYSPEPSIA
     Route: 048
     Dates: start: 20140826, end: 20140930
  28. PRBC [Concomitant]
     Indication: ANAEMIA
     Dosage: 1 UNIT
     Route: 042
     Dates: start: 20140928, end: 20140928
  29. PLATELETS [Concomitant]
     Active Substance: HUMAN PLATELET, ALLOGENIC
     Indication: THROMBOCYTOPENIA
     Dosage: 1 U
     Route: 042
     Dates: start: 20140928, end: 20140928
  30. MAGNESIUM SULFATE. [Concomitant]
     Active Substance: MAGNESIUM SULFATE
     Indication: HYPOMAGNESAEMIA
     Route: 042
     Dates: start: 20140823, end: 20140823
  31. SODIUM BICARBONATE. [Concomitant]
     Active Substance: SODIUM BICARBONATE
     Indication: STOMATITIS
     Route: 050
     Dates: start: 20140806, end: 20140922
  32. EMEND [Concomitant]
     Active Substance: APREPITANT
     Indication: VOMITING
     Route: 048
     Dates: start: 20140808, end: 20140809
  33. ZANTAC [Concomitant]
     Active Substance: RANITIDINE HYDROCHLORIDE
     Indication: GASTRITIS
     Route: 048
     Dates: start: 20140808, end: 20140810
  34. ZANTAC [Concomitant]
     Active Substance: RANITIDINE HYDROCHLORIDE
     Route: 048
     Dates: start: 20140913, end: 20140915
  35. MEGACE SUSPENSION [Concomitant]
     Indication: DECREASED APPETITE
     Route: 048
     Dates: start: 20141003, end: 20141007
  36. CAPECITABINE. [Suspect]
     Active Substance: CAPECITABINE
     Indication: HER-2 POSITIVE GASTRIC CANCER
     Route: 048
     Dates: start: 20140807, end: 20140820
  37. CISPLATIN. [Suspect]
     Active Substance: CISPLATIN
     Indication: HER-2 POSITIVE GASTRIC CANCER
     Dosage: MOST RECENT DOSE ON 20/AUG/2014
     Route: 042
     Dates: start: 20140807
  38. NEUTROGIN [Concomitant]
     Active Substance: LENOGRASTIM
     Route: 042
     Dates: start: 20140930, end: 20141004
  39. STILNOX CR [Concomitant]
     Active Substance: ZOLPIDEM TARTRATE
     Indication: INSOMNIA
     Route: 048
     Dates: start: 20140830, end: 20140831
  40. MAGNESIUM SULFATE. [Concomitant]
     Active Substance: MAGNESIUM SULFATE
     Indication: ELECTROLYTE IMBALANCE
     Route: 042
     Dates: start: 20140806, end: 20140807
  41. MAGNESIUM SULFATE. [Concomitant]
     Active Substance: MAGNESIUM SULFATE
     Route: 042
     Dates: start: 20140912
  42. NASEA [Concomitant]
     Active Substance: RAMOSETRON HYDROCHLORIDE
     Indication: VOMITING
  43. NEUTROGIN [Concomitant]
     Active Substance: LENOGRASTIM
     Indication: NEUTROPENIA
     Route: 058
     Dates: start: 20140824, end: 20140829
  44. LASIX [Concomitant]
     Active Substance: FUROSEMIDE
     Indication: HYPERVOLAEMIA
     Route: 042
     Dates: start: 20140912
  45. LIDOCAINE. [Concomitant]
     Active Substance: LIDOCAINE
     Indication: STOMATITIS
     Dosage: GARGLE
     Route: 050
     Dates: start: 20141006, end: 20141013
  46. MAGNES [Concomitant]
     Indication: HYPOMAGNESAEMIA
     Route: 048
     Dates: start: 20141004, end: 20141007

REACTIONS (2)
  - Enteritis [Recovered/Resolved]
  - Abdominal pain upper [Recovered/Resolved]

NARRATIVE: CASE EVENT DATE: 20140820
